FAERS Safety Report 11368912 (Version 1)
Quarter: 2015Q3

REPORT INFORMATION
  Report Type: Spontaneous
  Country: JP (occurrence: JP)
  Receive Date: 20150812
  Receipt Date: 20150812
  Transmission Date: 20151125
  Serious: Yes (Death, Hospitalization)
  Sender: FDA-Public Use
  Company Number: JP-ROCHE-1619672

PATIENT
  Age: 64 Year
  Sex: Male
  Weight: 56 kg

DRUGS (8)
  1. 5-FU [Concomitant]
     Active Substance: FLUOROURACIL
     Dosage: COMPLETED TREATMENT CYCLE NUMBER 3
     Route: 041
     Dates: start: 20150227, end: 20150421
  2. XELODA [Suspect]
     Active Substance: CAPECITABINE
     Indication: COLON CANCER
     Dosage: IT IS ADMINISTER/ONE WEEKLY HOLIDAY MEDICINE FOR TWO WEEKS.
     Route: 048
     Dates: start: 20150120, end: 20150201
  3. ELPLAT [Suspect]
     Active Substance: OXALIPLATIN
     Dosage: COMPLETED TREATMENT CYCLE NUMBER 3
     Route: 041
     Dates: start: 20150227, end: 20150421
  4. AVASTIN [Suspect]
     Active Substance: BEVACIZUMAB
     Indication: COLON CANCER
     Route: 041
     Dates: start: 20150227, end: 20150421
  5. 5-FU [Concomitant]
     Active Substance: FLUOROURACIL
     Indication: COLON CANCER
     Dosage: COMPLETED TREATMENT CYCLE NUMBER 3
     Route: 040
     Dates: start: 20150227, end: 20150421
  6. ELPLAT [Suspect]
     Active Substance: OXALIPLATIN
     Indication: COLON CANCER
     Dosage: DOSAGE IS UNCERTAIN.
     Route: 041
     Dates: start: 20141028, end: 20150203
  7. LEVOFOLINATE [Concomitant]
     Active Substance: LEVOLEUCOVORIN CALCIUM
     Indication: COLON CANCER
     Dosage: COMPLETED TREATMENT CYCLE NUMBER 3
     Route: 041
     Dates: start: 20150227, end: 20150421
  8. XELODA [Suspect]
     Active Substance: CAPECITABINE
     Indication: COLON CANCER
     Dosage: IT IS ADMINISTER/ONE WEEKLY HOLIDAY MEDICINE FOR TWO WEEKS.
     Route: 048
     Dates: start: 20141028, end: 20150103

REACTIONS (5)
  - Colon cancer [Fatal]
  - Cerebral haemorrhage [Recovered/Resolved with Sequelae]
  - Nausea [Recovered/Resolved]
  - Platelet count decreased [Unknown]
  - Vomiting [Recovered/Resolved]

NARRATIVE: CASE EVENT DATE: 20141104
